FAERS Safety Report 6651528-5 (Version None)
Quarter: 2010Q1

REPORT INFORMATION
  Report Type: 
  Country: None (occurrence: None)
  Receive Date: 20100325
  Receipt Date: 20100323
  Transmission Date: 20100710
  Serious: Yes (Hospitalization, Other)
  Sender: FDA-Public Use
  Company Number: A0850299A

PATIENT
  Sex: Male
  Weight: 59 kg

DRUGS (5)
  1. LAPATINIB [Suspect]
     Dosage: 1500MG PER DAY
     Route: 048
     Dates: start: 20100225
  2. CISPLATIN [Suspect]
     Dosage: 100MG PER DAY
     Route: 042
     Dates: start: 20100305
  3. RADIOTHERAPY [Suspect]
     Route: 061
  4. METROGYL [Concomitant]
     Dosage: 100ML PER DAY
     Route: 042
     Dates: start: 20100312, end: 20100314
  5. CIPLOX [Concomitant]
     Dosage: 100ML PER DAY
     Route: 042
     Dates: start: 20100312, end: 20100314

REACTIONS (6)
  - CONSTIPATION [None]
  - HICCUPS [None]
  - HYPOKALAEMIA [None]
  - HYPONATRAEMIA [None]
  - NAUSEA [None]
  - VOMITING [None]
